FAERS Safety Report 16912900 (Version 1)
Quarter: 2019Q4

REPORT INFORMATION
  Report Type: Report from Study
  Country: US (occurrence: US)
  Receive Date: 20191014
  Receipt Date: 20191014
  Transmission Date: 20200122
  Serious: Yes (Other)
  Sender: FDA-Public Use
  Company Number: US-ROCHE-2428149

PATIENT
  Sex: Female
  Weight: 79 kg

DRUGS (1)
  1. OCREVUS [Suspect]
     Active Substance: OCRELIZUMAB
     Indication: MULTIPLE SCLEROSIS
     Dosage: NEXT DOSE: 17/JUN/2019
     Route: 065
     Dates: start: 20190603

REACTIONS (2)
  - Multiple sclerosis relapse [Unknown]
  - Nasopharyngitis [Unknown]
